FAERS Safety Report 6899236-X (Version None)
Quarter: 2010Q3

REPORT INFORMATION
  Report Type: 
  Country: None (occurrence: None)
  Receive Date: 20100802
  Receipt Date: 20080301
  Transmission Date: 20110219
  Serious: No
  Sender: FDA-Public Use
  Company Number: US-PFIZER INC-2007107572

PATIENT
  Sex: Female
  Weight: 90.7 kg

DRUGS (13)
  1. LYRICA [Suspect]
     Indication: FIBROMYALGIA
     Route: 048
     Dates: start: 20071026
  2. LYRICA [Suspect]
     Indication: OSTEOARTHRITIS
  3. INDERAL LA [Concomitant]
  4. CALCIUM [Concomitant]
  5. VITAMINS WITH MINERALS [Concomitant]
  6. AMILORIDE HCL AND HYDROCHLOROTHIAZIDE [Concomitant]
  7. FLEXERIL [Concomitant]
  8. NEXIUM [Concomitant]
  9. FLONASE [Concomitant]
  10. ALL OTHER THERAPEUTIC PRODUCTS [Concomitant]
  11. AMILORIDE HYDROCHLORIDE [Concomitant]
  12. DIOVANE [Concomitant]
  13. MOBIC [Concomitant]

REACTIONS (6)
  - DRY MOUTH [None]
  - DYSPHONIA [None]
  - NASOPHARYNGITIS [None]
  - SOMNOLENCE [None]
  - TINNITUS [None]
  - VISION BLURRED [None]
